FAERS Safety Report 8521380-1 (Version None)
Quarter: 2012Q3

REPORT INFORMATION
  Report Type: 
  Country: None (occurrence: None)
  Receive Date: 20120719
  Receipt Date: 20110615
  Transmission Date: 20120928
  Serious: Yes (Hospitalization)
  Sender: FDA-Public Use
  Company Number: US-BRISTOL-MYERS SQUIBB COMPANY-15799836

PATIENT
  Age: 79 Year
  Sex: Female

DRUGS (2)
  1. TASIGNA [Suspect]
  2. SPRYCEL [Suspect]
     Dates: start: 20080101

REACTIONS (2)
  - PERICARDIAL EFFUSION [None]
  - PULMONARY OEDEMA [None]
